FAERS Safety Report 4907306-8 (Version None)
Quarter: 2006Q1

REPORT INFORMATION
  Report Type: 
  Country: None (occurrence: None)
  Receive Date: 20060208
  Receipt Date: 20060208
  Transmission Date: 20060701
  Serious: Yes (Hospitalization)
  Sender: FDA-Public Use
  Company Number: None

PATIENT
  Age: 52 Year
  Sex: Male
  Weight: 65.953 kg

DRUGS (2)
  1. IBUPROFEN [Suspect]
     Indication: BACK PAIN
  2. ATENOLOL [Concomitant]

REACTIONS (15)
  - ABDOMINAL PAIN [None]
  - ALCOHOL USE [None]
  - CONSTIPATION [None]
  - DIZZINESS [None]
  - DYSPHAGIA [None]
  - GASTRITIS EROSIVE [None]
  - GASTROINTESTINAL EROSION [None]
  - GASTROINTESTINAL MUCOSAL DISORDER [None]
  - GASTROOESOPHAGEAL REFLUX DISEASE [None]
  - HAEMATOCRIT ABNORMAL [None]
  - NAUSEA [None]
  - ORAL INTAKE REDUCED [None]
  - RETCHING [None]
  - VOMITING [None]
  - WEIGHT DECREASED [None]
